FAERS Safety Report 24983756 (Version 5)
Quarter: 2025Q2

REPORT INFORMATION
  Report Type: Spontaneous
  Country: JP (occurrence: JP)
  Receive Date: 20250219
  Receipt Date: 20250527
  Transmission Date: 20250717
  Serious: Yes (Hospitalization)
  Sender: GLAXOSMITHKLINE
  Company Number: JP-GSK-JP2025JPN019637

PATIENT

DRUGS (21)
  1. DAPRODUSTAT [Suspect]
     Active Substance: DAPRODUSTAT
     Indication: Nephrogenic anaemia
     Route: 048
     Dates: start: 20241223
  2. DAPRODUSTAT [Suspect]
     Active Substance: DAPRODUSTAT
     Route: 048
     Dates: start: 20250106
  3. DAPRODUSTAT [Suspect]
     Active Substance: DAPRODUSTAT
     Route: 048
     Dates: start: 20250120
  4. DARBEPOETIN ALFA [Concomitant]
     Active Substance: DARBEPOETIN ALFA
     Indication: Nephrogenic anaemia
     Dosage: 90 ?G, WE
     Dates: start: 2019
  5. PLAVIX [Concomitant]
     Active Substance: CLOPIDOGREL BISULFATE
     Dosage: 75 MG, 1D, AFTER MORNING MEAL
  6. VONOPRAZAN FUMARATE [Concomitant]
     Active Substance: VONOPRAZAN FUMARATE
     Dosage: 10 MG, 1D, AFTER MORNING MEAL
  7. AZILSARTAN KAMEDOXOMIL [Concomitant]
     Active Substance: AZILSARTAN KAMEDOXOMIL
     Dosage: 20 MG, 1D, AFTER MORNING MEAL
  8. ASPIRIN [Concomitant]
     Active Substance: ASPIRIN
     Dosage: 100 MG, 1D, AFTER MORNING MEAL
  9. LIPITOR [Concomitant]
     Active Substance: ATORVASTATIN CALCIUM
     Dosage: 10 MG, 1D, AFTER EVENING MEAL
  10. BENIDIPINE HYDROCHLORIDE [Concomitant]
     Active Substance: BENIDIPINE HYDROCHLORIDE
     Dosage: 2 MG, 1D, AFTER EVENING MEAL
  11. NAFTOPIDIL [Concomitant]
     Active Substance: NAFTOPIDIL
     Dosage: 75 MG, 1D, AFTER EVENING MEAL
  12. AMLODIPINE BESYLATE [Concomitant]
     Active Substance: AMLODIPINE BESYLATE
     Dosage: 10 MG, 1D, AFTER EVENING MEAL
  13. HERBALS [Concomitant]
     Active Substance: HERBALS
     Dosage: 2 DF, BID, AFTER MEALS IN MORNING AND EVENING
  14. SINGULAIR [Concomitant]
     Active Substance: MONTELUKAST SODIUM
     Dosage: 10 MG, 1D, BEFORE BEDTIME
  15. Caltan od [Concomitant]
     Dosage: 500 MG, 1D, IMMEDIATELY AFTER EVENING MEAL
  16. ACETAMINOPHEN\TRAMADOL HYDROCHLORIDE [Concomitant]
     Active Substance: ACETAMINOPHEN\TRAMADOL HYDROCHLORIDE
     Dosage: UNK, BID, AFTER MEALS IN MORNING AND EVENING
  17. MIYA-BM [Concomitant]
     Active Substance: CLOSTRIDIUM BUTYRICUM SPORES STRAIN M-55
     Dosage: 3 DF, TID, AFTER MEALS IN MORNING, NOON, EVENING
  18. Nalfurafine hydrochloride od [Concomitant]
     Dosage: 2.5 ?G, 1D, AFTER EVENING MEAL
  19. ALESION [Concomitant]
     Active Substance: EPINASTINE HYDROCHLORIDE
     Dosage: 10 MG, 1D, AFTER EVENING MEAL
  20. CALONAL [Concomitant]
     Active Substance: ACETAMINOPHEN
     Dosage: 200 MG, QID, AFTER MEALS IN MORNING, NOON, EVENING, AND BEFORE BEDTIME
  21. Larixin [Concomitant]
     Dosage: 500 MG, BID, AFTER MEALS IN MORNING AND EVENING

REACTIONS (3)
  - Peripheral arterial occlusive disease [Unknown]
  - Product use issue [Unknown]
  - Off label use [Unknown]

NARRATIVE: CASE EVENT DATE: 20250120
